FAERS Safety Report 7506849-0 (Version None)
Quarter: 2011Q2

REPORT INFORMATION
  Report Type: 
  Country: None (occurrence: None)
  Receive Date: 20110526
  Receipt Date: 20110518
  Transmission Date: 20111010
  Serious: Yes (Death, Hospitalization)
  Sender: FDA-Public Use
  Company Number: B0719895A

PATIENT
  Age: 80 Year
  Sex: Female

DRUGS (4)
  1. CYTARABINE [Suspect]
     Dosage: 50MG PER DAY
     Route: 037
     Dates: start: 20101113, end: 20101113
  2. ONDANSERTRON HYDROCHLORIDE [Suspect]
     Dosage: 8MG PER DAY
     Route: 042
     Dates: start: 20101110, end: 20101114
  3. TEMOZOLOMIDE [Suspect]
     Dosage: 140MG PER DAY
     Route: 048
     Dates: start: 20101110, end: 20101114
  4. METHOTREXATE [Suspect]
     Dosage: 4000MG PER DAY
     Route: 042
     Dates: start: 20101110, end: 20101110

REACTIONS (19)
  - ODYNOPHAGIA [None]
  - C-REACTIVE PROTEIN INCREASED [None]
  - ALTERED STATE OF CONSCIOUSNESS [None]
  - ERYTHEMA [None]
  - DYSPNOEA [None]
  - PYREXIA [None]
  - VULVAL OEDEMA [None]
  - RASH MACULAR [None]
  - DYSPHAGIA [None]
  - FACE OEDEMA [None]
  - RASH MORBILLIFORM [None]
  - DIABETES MELLITUS INADEQUATE CONTROL [None]
  - TOXIC EPIDERMAL NECROLYSIS [None]
  - ENANTHEMA [None]
  - TONGUE EXFOLIATION [None]
  - SEPSIS [None]
  - ACUTE RESPIRATORY FAILURE [None]
  - SKIN DISORDER [None]
  - TRANSAMINASES INCREASED [None]
